FAERS Safety Report 19366561 (Version 7)
Quarter: 2023Q1

REPORT INFORMATION
  Report Type: Report from Study
  Country: AU (occurrence: AU)
  Receive Date: 20210603
  Receipt Date: 20230306
  Transmission Date: 20230418
  Serious: Yes (Death, Life-Threatening, Hospitalization, Other)
  Sender: FDA-Public Use
  Company Number: NVSC2021AU122334

PATIENT
  Age: 19 Year
  Sex: Male
  Weight: 76.2 kg

DRUGS (60)
  1. CYCLOPHOSPHAMIDE [Suspect]
     Active Substance: CYCLOPHOSPHAMIDE
     Indication: Product used for unknown indication
     Dosage: UNK
     Route: 065
  2. FLUDARABINE [Suspect]
     Active Substance: FLUDARABINE PHOSPHATE
     Indication: Product used for unknown indication
     Dosage: UNK
     Route: 065
  3. RITUXIMAB [Suspect]
     Active Substance: RITUXIMAB
     Indication: B-cell lymphoma
     Dosage: 700 MG, ONCE/SINGLE
     Route: 065
     Dates: start: 20190815, end: 20190904
  4. GEMCITABINE [Suspect]
     Active Substance: GEMCITABINE
     Indication: B-cell lymphoma
     Dosage: 1900 MG, ONCE/SINGLE
     Route: 042
     Dates: start: 20190815
  5. CISPLATIN [Suspect]
     Active Substance: CISPLATIN
     Indication: B-cell lymphoma
     Dosage: 143 MG, ONCE/SINGLE
     Route: 042
     Dates: start: 20190816
  6. CYTARABINE [Suspect]
     Active Substance: CYTARABINE
     Indication: B-cell lymphoma
     Dosage: 7600 MG, BID
     Route: 041
     Dates: start: 20190906, end: 20190907
  7. CYTARABINE [Suspect]
     Active Substance: CYTARABINE
     Indication: Chemotherapy
  8. GENTAMICIN [Concomitant]
     Active Substance: GENTAMICIN
     Indication: Febrile neutropenia
     Dosage: UNK
     Route: 065
     Dates: start: 20190829, end: 20190829
  9. GENTAMICIN [Concomitant]
     Active Substance: GENTAMICIN
     Indication: Pyrexia
     Dosage: UNK
     Route: 065
     Dates: start: 20190831, end: 20190831
  10. GENTAMICIN [Concomitant]
     Active Substance: GENTAMICIN
     Dosage: UNK
     Route: 065
     Dates: start: 20190909, end: 20190909
  11. GENTAMICIN [Concomitant]
     Active Substance: GENTAMICIN
     Dosage: UNK
     Route: 065
     Dates: start: 20190914, end: 20190914
  12. DOCUSATE SODIUM\SENNOSIDE A\SENNOSIDE B [Concomitant]
     Active Substance: DOCUSATE SODIUM\SENNOSIDE A\SENNOSIDE B
     Indication: Constipation
     Dosage: UNK
     Route: 065
     Dates: start: 20190901, end: 20190925
  13. DROPERIDOL [Concomitant]
     Active Substance: DROPERIDOL
     Indication: Nausea
     Dosage: UNK
     Route: 065
     Dates: start: 20190909, end: 20191006
  14. OXYCODONE HYDROCHLORIDE [Concomitant]
     Active Substance: OXYCODONE HYDROCHLORIDE
     Indication: Pain
     Dosage: UNK
     Route: 065
     Dates: start: 20190829, end: 20190902
  15. OXYCODONE HYDROCHLORIDE [Concomitant]
     Active Substance: OXYCODONE HYDROCHLORIDE
     Dosage: UNK
     Route: 065
     Dates: start: 20190830, end: 20190902
  16. FILGRASTIM [Concomitant]
     Active Substance: FILGRASTIM
     Indication: Febrile neutropenia
     Dosage: UNK
     Route: 065
     Dates: start: 20190908, end: 20190918
  17. FUROSEMIDE [Concomitant]
     Active Substance: FUROSEMIDE
     Indication: Generalised oedema
     Dosage: UNK
     Route: 065
     Dates: start: 20190904, end: 20190927
  18. ALLOPURINOL [Concomitant]
     Active Substance: ALLOPURINOL
     Indication: Prophylaxis
     Dosage: UNK
     Route: 065
     Dates: start: 20190814
  19. KETAMINE [Concomitant]
     Active Substance: KETAMINE
     Indication: Pain
     Dosage: UNK
     Route: 065
     Dates: start: 20190910, end: 20190910
  20. KETAMINE [Concomitant]
     Active Substance: KETAMINE
     Dosage: UNK
     Route: 065
     Dates: start: 20190911, end: 20190921
  21. LORATADINE [Concomitant]
     Active Substance: LORATADINE
     Indication: Premedication
     Dosage: UNK
     Route: 065
     Dates: start: 20190904, end: 20190904
  22. LORAZEPAM [Concomitant]
     Active Substance: LORAZEPAM
     Indication: Anxiety
     Dosage: UNK
     Route: 065
     Dates: start: 20190830, end: 20191007
  23. MAGNESIUM ASPARTATE [Concomitant]
     Active Substance: MAGNESIUM ASPARTATE
     Indication: Prophylaxis
     Dosage: UNK
     Route: 065
     Dates: start: 20190912, end: 20190925
  24. MAGNESIUM SULFATE [Concomitant]
     Active Substance: MAGNESIUM SULFATE
     Indication: Prophylaxis
     Dosage: UNK
     Route: 065
     Dates: start: 20190830, end: 20191011
  25. MELATONIN [Concomitant]
     Active Substance: MELATONIN
     Indication: Insomnia
     Dosage: UNK
     Route: 065
     Dates: start: 20190911, end: 20190925
  26. METOCLOPRAMIDE HYDROCHLORIDE [Concomitant]
     Active Substance: METOCLOPRAMIDE HYDROCHLORIDE
     Indication: Prophylaxis of nausea and vomiting
     Dosage: UNK
     Route: 065
     Dates: start: 20190830, end: 20190922
  27. BACTRIM DS [Concomitant]
     Active Substance: SULFAMETHOXAZOLE\TRIMETHOPRIM
     Indication: Prophylaxis
     Dosage: UNK
     Route: 065
     Dates: start: 20190814
  28. MORPHINE [Concomitant]
     Active Substance: MORPHINE
     Indication: Pain
     Dosage: UNK
     Route: 065
     Dates: start: 20190904, end: 20191006
  29. NETUPITANT\PALONOSETRON [Concomitant]
     Active Substance: NETUPITANT\PALONOSETRON
     Indication: Premedication
     Dosage: UNK
     Route: 065
     Dates: start: 20190904, end: 20190904
  30. ONDANSETRON [Concomitant]
     Active Substance: ONDANSETRON
     Indication: Nausea
     Dosage: UNK
     Route: 065
     Dates: start: 20190818
  31. ONDANSETRON [Concomitant]
     Active Substance: ONDANSETRON
     Indication: Prophylaxis of nausea and vomiting
     Dosage: UNK
     Route: 065
     Dates: start: 20190830, end: 20191008
  32. ONDANSETRON [Concomitant]
     Active Substance: ONDANSETRON
     Indication: Vomiting
  33. PANTOPRAZOLE [Concomitant]
     Active Substance: PANTOPRAZOLE
     Indication: Gastrooesophageal reflux prophylaxis
     Dosage: UNK
     Route: 065
     Dates: start: 20190831, end: 20190925
  34. ACETAMINOPHEN [Concomitant]
     Active Substance: ACETAMINOPHEN
     Indication: Pain
     Dosage: UNK
     Route: 065
     Dates: start: 20190830, end: 20191009
  35. ACETAMINOPHEN [Concomitant]
     Active Substance: ACETAMINOPHEN
     Indication: Premedication
     Dosage: UNK
     Route: 065
     Dates: start: 20190902, end: 20190908
  36. ACETAMINOPHEN [Concomitant]
     Active Substance: ACETAMINOPHEN
     Dosage: UNK
     Route: 065
     Dates: start: 20190904, end: 20190904
  37. PHENYLEPHRINE;PREDNISOLONE [Concomitant]
     Indication: Prophylaxis
     Dosage: UNK
     Route: 065
     Dates: start: 20190905, end: 20190908
  38. PHOSPHORUS [Concomitant]
     Active Substance: PHOSPHORUS
     Indication: Prophylaxis
     Dosage: UNK
     Route: 065
     Dates: start: 20190913, end: 20190916
  39. PHOSPHORUS [Concomitant]
     Active Substance: PHOSPHORUS
     Dosage: UNK
     Route: 065
     Dates: start: 20190914, end: 20190914
  40. PIPERACILLIN AND TAZOBACTAM [Concomitant]
     Active Substance: PIPERACILLIN SODIUM\TAZOBACTAM SODIUM
     Indication: Pyrexia
     Dosage: UNK
     Route: 065
     Dates: start: 20190830, end: 20191008
  41. POTASSIUM CHLORIDE [Concomitant]
     Active Substance: POTASSIUM CHLORIDE
     Indication: Prophylaxis
     Dosage: UNK
     Route: 065
     Dates: start: 20190905, end: 20190905
  42. POTASSIUM CHLORIDE [Concomitant]
     Active Substance: POTASSIUM CHLORIDE
     Dosage: UNK
     Route: 065
     Dates: start: 20190909, end: 20190927
  43. POTASSIUM CHLORIDE [Concomitant]
     Active Substance: POTASSIUM CHLORIDE
     Dosage: UNK
     Route: 065
     Dates: start: 20190913, end: 20191011
  44. RASBURICASE [Concomitant]
     Active Substance: RASBURICASE
     Indication: Prophylaxis
     Dosage: UNK
     Route: 065
     Dates: start: 20190904, end: 20191004
  45. SULFAMETHOXAZOLE AND TRIMETHOPRIM [Concomitant]
     Active Substance: SULFAMETHOXAZOLE\TRIMETHOPRIM
     Indication: Pyrexia
     Dosage: UNK
     Route: 065
     Dates: start: 20190902
  46. TAPENTADOL [Concomitant]
     Active Substance: TAPENTADOL
     Indication: Pain
     Dosage: UNK
     Route: 065
     Dates: start: 20190902, end: 20191009
  47. NALOXONE HYDROCHLORIDE\OXYCODONE HYDROCHLORIDE [Concomitant]
     Active Substance: NALOXONE HYDROCHLORIDE\OXYCODONE HYDROCHLORIDE
     Indication: Pain
     Dosage: UNK
     Route: 065
     Dates: start: 20190901, end: 20190902
  48. THIAMINE [Concomitant]
     Active Substance: THIAMINE
     Indication: Parenteral nutrition
     Dosage: UNK
     Route: 065
     Dates: start: 20190912, end: 20190923
  49. THIAMINE [Concomitant]
     Active Substance: THIAMINE
     Indication: Prophylaxis
  50. VANCOMYCIN [Concomitant]
     Active Substance: VANCOMYCIN
     Indication: Pyrexia
     Dosage: UNK
     Route: 065
     Dates: start: 20190901, end: 20190901
  51. ERGOCALCIFEROL\PHYTONADIONE\TOCOPHEROL\VITAMIN A PALMITATE [Concomitant]
     Active Substance: ERGOCALCIFEROL\PHYTONADIONE\TOCOPHEROL\VITAMIN A PALMITATE
     Indication: Parenteral nutrition
     Dosage: UNK
     Route: 065
     Dates: start: 20190912, end: 20191011
  52. ERGOCALCIFEROL\PHYTONADIONE\TOCOPHEROL\VITAMIN A PALMITATE [Concomitant]
     Active Substance: ERGOCALCIFEROL\PHYTONADIONE\TOCOPHEROL\VITAMIN A PALMITATE
     Indication: Prophylaxis
  53. POTASSIUM PHOSPHATE, MONOBASIC [Concomitant]
     Active Substance: POTASSIUM PHOSPHATE, MONOBASIC
     Indication: Hypophosphataemia
     Dosage: 1.36G/10ML
     Route: 065
     Dates: start: 20190914, end: 20190916
  54. CYCLIZINE [Concomitant]
     Active Substance: CYCLIZINE
     Indication: Nausea
     Dosage: UNK
     Route: 065
     Dates: start: 20190829, end: 20191012
  55. PIPERACILLIN SODIUM\TAZOBACTAM SODIUM [Concomitant]
     Active Substance: PIPERACILLIN SODIUM\TAZOBACTAM SODIUM
     Indication: Febrile neutropenia
     Dosage: UNK
     Route: 065
     Dates: start: 20190829, end: 20190927
  56. AMINO ACIDS\DEXTROSE\ELECTROLYTES NOS\SOYBEAN OIL [Concomitant]
     Active Substance: AMINO ACIDS\DEXTROSE\ELECTROLYTES NOS\SOYBEAN OIL
     Indication: Parenteral nutrition
     Dosage: EMULSION
     Route: 065
     Dates: start: 20190912, end: 20191003
  57. VITAMINS [Concomitant]
     Active Substance: VITAMINS
     Indication: Parenteral nutrition
     Dosage: UNK
     Route: 065
     Dates: start: 20190912, end: 20191011
  58. ELECTROLYTES NOS\MINERALS [Concomitant]
     Active Substance: ELECTROLYTES NOS\MINERALS
     Indication: Parenteral nutrition
     Dosage: UNK
     Route: 065
     Dates: start: 20190912, end: 20191008
  59. VALACYCLOVIR HYDROCHLORIDE [Concomitant]
     Active Substance: VALACYCLOVIR HYDROCHLORIDE
     Indication: Antiviral prophylaxis
     Dosage: UNK
     Route: 065
     Dates: start: 201903, end: 20190925
  60. TEMAZEPAM [Concomitant]
     Active Substance: TEMAZEPAM
     Indication: Insomnia
     Dosage: UNK
     Route: 065
     Dates: start: 20190814, end: 20191008

REACTIONS (1)
  - Bacterial sepsis [Fatal]

NARRATIVE: CASE EVENT DATE: 20190914
